FAERS Safety Report 19464933 (Version 3)
Quarter: 2022Q2

REPORT INFORMATION
  Report Type: Report from Study
  Country: US (occurrence: US)
  Receive Date: 20210626
  Receipt Date: 20220604
  Transmission Date: 20220721
  Serious: Yes (Hospitalization, Other)
  Sender: FDA-Public Use
  Company Number: US-NOVARTISPH-NVSC2021US136973

PATIENT
  Age: 47 Year
  Sex: Male

DRUGS (1)
  1. ENTRESTO [Suspect]
     Active Substance: SACUBITRIL\VALSARTAN
     Indication: Cardiac failure
     Dosage: UNK UNK, BID
     Route: 048
     Dates: start: 202104, end: 20210526

REACTIONS (4)
  - Complication associated with device [Unknown]
  - Cardiac failure congestive [Unknown]
  - Fluid retention [Unknown]
  - Swelling [Unknown]

NARRATIVE: CASE EVENT DATE: 20210603
